FAERS Safety Report 9342182 (Version 3)
Quarter: 2013Q3

REPORT INFORMATION
  Report Type: Spontaneous
  Country: DE (occurrence: None)
  Receive Date: 20130606
  Receipt Date: 20130923
  Transmission Date: 20140515
  Serious: Yes (Hospitalization)
  Sender: FDA-Public Use
  Company Number: 1306-729

PATIENT
  Age: 87 Year
  Sex: Male

DRUGS (3)
  1. EYLEA [Suspect]
     Indication: AGE-RELATED MACULAR DEGENERATION
     Route: 031
     Dates: start: 20130521, end: 20130521
  2. WARFARIN (WARFARIN) [Concomitant]
  3. AMLODIPINE (AMLODIPINE) [Concomitant]

REACTIONS (3)
  - Cerebral infarction [None]
  - Loss of consciousness [None]
  - Blood pressure increased [None]
